FAERS Safety Report 10194261 (Version 1)
Quarter: 2014Q2

REPORT INFORMATION
  Report Type: Spontaneous
  Country: FR (occurrence: FR)
  Receive Date: 20140526
  Receipt Date: 20140526
  Transmission Date: 20141212
  Serious: Yes (Hospitalization)
  Sender: FDA-Public Use
  Company Number: FR-ROCHE-1405490

PATIENT
  Age: 64 Year
  Sex: Male
  Weight: 70 kg

DRUGS (4)
  1. CELLCEPT [Suspect]
     Indication: GRAFT VERSUS HOST DISEASE
     Route: 048
     Dates: start: 201306, end: 2013
  2. CELLCEPT [Suspect]
     Route: 048
  3. NEORAL [Suspect]
     Indication: GRAFT VERSUS HOST DISEASE
     Route: 048
     Dates: start: 201306, end: 20131104
  4. METHOTREXATE [Concomitant]
     Route: 065

REACTIONS (2)
  - Hepatocellular injury [Recovered/Resolved]
  - Cholestasis [Recovered/Resolved]
